FAERS Safety Report 5884882-2 (Version None)
Quarter: 2008Q3

REPORT INFORMATION
  Report Type: 
  Country: None (occurrence: None)
  Receive Date: 20080912
  Receipt Date: 20080827
  Transmission Date: 20090109
  Serious: Yes (Other)
  Sender: FDA-Public Use
  Company Number: IMP_03774_2008

PATIENT
  Sex: Male
  Weight: 108.8633 kg

DRUGS (7)
  1. BUPROPION HCL [Suspect]
     Indication: DRUG USE FOR UNKNOWN INDICATION
     Dosage: 300 MG QD ORAL
     Route: 048
     Dates: start: 20061101
  2. HYDROCHLOROTHIAZIDE [Concomitant]
  3. PROSCAR [Concomitant]
  4. METFORMIN HCL [Concomitant]
  5. CRESTOR [Concomitant]
  6. FLOMAX [Concomitant]
  7. WELLBUTRIN XL [Suspect]

REACTIONS (8)
  - ANGER [None]
  - ANXIETY [None]
  - DEPRESSED MOOD [None]
  - DRUG INEFFECTIVE [None]
  - IMPAIRED WORK ABILITY [None]
  - SELF-MEDICATION [None]
  - SUICIDAL IDEATION [None]
  - THERAPEUTIC RESPONSE UNEXPECTED WITH DRUG SUBSTITUTION [None]
